FAERS Safety Report 19577146 (Version 2)
Quarter: 2021Q3

REPORT INFORMATION
  Report Type: Spontaneous
  Country: IT (occurrence: IT)
  Receive Date: 20210719
  Receipt Date: 20210811
  Transmission Date: 20211014
  Serious: Yes (Hospitalization, Other)
  Sender: FDA-Public Use
  Company Number: IT-VELOXIS PHARMACEUTICALS-2021VELIT-000336

PATIENT
  Age: 66 Year
  Sex: Male

DRUGS (7)
  1. ENVARSUS XR [Suspect]
     Active Substance: TACROLIMUS
     Dosage: 7 MG, QD
     Route: 065
     Dates: start: 20210402, end: 20210419
  2. DEURSIL [Concomitant]
     Active Substance: URSODIOL
     Indication: PRODUCT USED FOR UNKNOWN INDICATION
     Dosage: 1 TAB AT 22 IN EVENING
     Dates: start: 20210402
  3. ENOXAPARINA [Concomitant]
     Active Substance: ENOXAPARIN
     Indication: PRODUCT USED FOR UNKNOWN INDICATION
     Dosage: 1 VIAL
     Dates: start: 20210402, end: 20210503
  4. MYCOPHENOLATE [Suspect]
     Active Substance: MYCOPHENOLIC ACID
     Indication: IMMUNOSUPPRESSANT DRUG THERAPY
     Dosage: 1 TAB AT 8 IN MORNING
     Dates: start: 20210402
  5. CARDIOASPIRINA [Concomitant]
     Active Substance: ASPIRIN
     Indication: PRODUCT USED FOR UNKNOWN INDICATION
     Dosage: 1 TAB AT 3 PM
     Dates: start: 20210402
  6. ENVARSUS XR [Suspect]
     Active Substance: TACROLIMUS
     Indication: PROPHYLAXIS AGAINST TRANSPLANT REJECTION
     Dosage: 2 MG, QD
     Route: 065
     Dates: start: 20210327, end: 20210401
  7. DELTACORTENE [Suspect]
     Active Substance: PREDNISONE
     Indication: IMMUNOSUPPRESSANT DRUG THERAPY
     Dosage: 1 TAB AT 8 IN MORNING
     Dates: start: 20210402

REACTIONS (2)
  - Loss of consciousness [Recovered/Resolved]
  - Epilepsy [Recovered/Resolved]

NARRATIVE: CASE EVENT DATE: 20210419
